FAERS Safety Report 7873281-X (Version None)
Quarter: 2011Q4

REPORT INFORMATION
  Report Type: 
  Country: None (occurrence: None)
  Receive Date: 20111030
  Receipt Date: 20110502
  Transmission Date: 20120403
  Serious: No
  Sender: FDA-Public Use
  Company Number: US-AMGEN-USASP2011022576

PATIENT
  Age: 64 Year
  Sex: Female

DRUGS (1)
  1. ENBREL [Suspect]
     Indication: RHEUMATOID ARTHRITIS
     Dosage: 50 MG, QWK
     Dates: start: 20060101

REACTIONS (10)
  - PANIC ATTACK [None]
  - HYPERTENSION [None]
  - FATIGUE [None]
  - NERVOUSNESS [None]
  - SPIDER VEIN [None]
  - SARCOIDOSIS [None]
  - DYSPNOEA [None]
  - FORMICATION [None]
  - FALL [None]
  - WRIST FRACTURE [None]
